FAERS Safety Report 25079331 (Version 2)
Quarter: 2025Q4

REPORT INFORMATION
  Report Type: Spontaneous
  Country: US (occurrence: US)
  Receive Date: 20250314
  Receipt Date: 20251104
  Transmission Date: 20260118
  Serious: Yes (Other)
  Sender: COOPERSURGICAL
  Company Number: US-COOPERSURGICAL, INC.-2025CPS001868

PATIENT
  Age: 36 Year
  Sex: Female
  Weight: 92.971 kg

DRUGS (1)
  1. PARAGARD T 380A [Suspect]
     Active Substance: COPPER
     Dosage: UNK
     Route: 015
     Dates: start: 20170908, end: 20220607

REACTIONS (28)
  - Hysterectomy [Recovered/Resolved]
  - Reproductive complication associated with device [Not Recovered/Not Resolved]
  - Device breakage [Recovered/Resolved]
  - Foreign body in reproductive tract [Recovered/Resolved]
  - Complication of device removal [Recovered/Resolved]
  - Embedded device [Recovered/Resolved]
  - Endometritis [Unknown]
  - Anxiety [Not Recovered/Not Resolved]
  - Mood swings [Not Recovered/Not Resolved]
  - Cervicitis [Unknown]
  - Procedural haemorrhage [Recovered/Resolved]
  - Post procedural hypotension [Recovered/Resolved]
  - Procedural pain [Unknown]
  - Affect lability [Unknown]
  - Memory impairment [Unknown]
  - Amnesia [Unknown]
  - Genital pain [Unknown]
  - Vulvovaginal pain [Unknown]
  - Vulvovaginal swelling [Unknown]
  - Insomnia [Unknown]
  - Pain [Unknown]
  - Pelvic pain [Unknown]
  - Menstrual disorder [Unknown]
  - Heavy menstrual bleeding [Recovered/Resolved]
  - Intermenstrual bleeding [Unknown]
  - Muscle spasms [Unknown]
  - Abdominal pain [Unknown]
  - Discomfort [Unknown]

NARRATIVE: CASE EVENT DATE: 20220101
